FAERS Safety Report 17509684 (Version 2)
Quarter: 2020Q3

REPORT INFORMATION
  Report Type: Report from Study
  Country: GB (occurrence: GB)
  Receive Date: 20200306
  Receipt Date: 20200318
  Transmission Date: 20201104
  Serious: Yes (Hospitalization)
  Sender: FDA-Public Use
  Company Number: GB-ROCHE-2560302

PATIENT
  Age: 62 Year
  Sex: Female
  Weight: 97.3 kg

DRUGS (2)
  1. ATEZOLIZUMAB. [Suspect]
     Active Substance: ATEZOLIZUMAB
     Indication: NEOPLASM
     Dosage: DATE OF MOST RECENT DOSE OF ATEZOLIZUMAB 8/JAN/2020
     Route: 042
     Dates: start: 20190806
  2. IPATASERTIB. [Suspect]
     Active Substance: IPATASERTIB
     Indication: NEOPLASM
     Dosage: DATE OF MOST RECENT DOSE OF IPATASERTIB 15/JAN/2020
     Route: 048
     Dates: start: 20190723

REACTIONS (1)
  - Metastases to meninges [Not Recovered/Not Resolved]

NARRATIVE: CASE EVENT DATE: 20200225
